FAERS Safety Report 6534027-0 (Version None)
Quarter: 2010Q1

REPORT INFORMATION
  Report Type: 
  Country: None (occurrence: None)
  Receive Date: 20100112
  Receipt Date: 20100105
  Transmission Date: 20100710
  Serious: Yes (Other)
  Sender: FDA-Public Use
  Company Number: PT-JNJFOC-20091106461

PATIENT
  Sex: Female

DRUGS (6)
  1. REMICADE [Suspect]
     Route: 042
     Dates: end: 20091110
  2. REMICADE [Suspect]
     Indication: CROHN'S DISEASE
     Route: 042
     Dates: end: 20091110
  3. REMICADE [Suspect]
     Indication: SPINAL OSTEOARTHRITIS
     Route: 042
     Dates: end: 20091110
  4. FLU VACCINE [Concomitant]
     Indication: PREMEDICATION
  5. H1N1 VACCINE [Concomitant]
     Indication: PREMEDICATION
  6. UNSPECIFIED VACCINES [Concomitant]
     Indication: PREMEDICATION

REACTIONS (5)
  - DRUG EXPOSURE DURING PREGNANCY [None]
  - DYSPNOEA [None]
  - ERYTHEMA [None]
  - FLUSHING [None]
  - TREMOR [None]
